FAERS Safety Report 17812411 (Version 1)
Quarter: 2020Q2

REPORT INFORMATION
  Report Type: Spontaneous
  Country: US (occurrence: US)
  Receive Date: 20200521
  Receipt Date: 20200521
  Transmission Date: 20200714
  Serious: Yes (Life-Threatening, Hospitalization, Other)
  Sender: FDA-Public Use
  Company Number: US-EXELA PHARMA SCIENCES, LLC-2020EXL00011

PATIENT
  Age: 44 Year
  Sex: Female

DRUGS (4)
  1. VERAPAMIL HYDROCHLORIDE. [Suspect]
     Active Substance: VERAPAMIL HYDROCHLORIDE
     Dosage: 125 MG (60 TABLETS)
     Route: 048
  2. CLONAZEPAM. [Suspect]
     Active Substance: CLONAZEPAM
     Indication: RESTLESS LEGS SYNDROME
     Dosage: 0.25 MG
     Route: 048
  3. VERAPAMIL HYDROCHLORIDE. [Suspect]
     Active Substance: VERAPAMIL HYDROCHLORIDE
     Indication: MIGRAINE WITH AURA
     Dosage: 125 MG
     Route: 048
  4. CLONAZEPAM. [Suspect]
     Active Substance: CLONAZEPAM
     Dosage: 0.25 (90 TABLETS)
     Route: 048

REACTIONS (13)
  - Nodal rhythm [Recovered/Resolved]
  - Toxicity to various agents [Recovered/Resolved]
  - Mitral valve thickening [Recovered/Resolved]
  - Acute respiratory distress syndrome [Recovered/Resolved]
  - Dysarthria [Recovered/Resolved]
  - Mental disorder [Recovered/Resolved]
  - Intentional overdose [Recovered/Resolved]
  - Bradycardia [Recovered/Resolved]
  - Hypotension [Recovered/Resolved]
  - Aspartate aminotransferase increased [Recovered/Resolved]
  - Electrocardiogram QT prolonged [Recovered/Resolved]
  - Suicidal ideation [Recovered/Resolved]
  - Electrocardiogram QRS complex prolonged [Recovered/Resolved]
